FAERS Safety Report 15746100 (Version 2)
Quarter: 2019Q1

REPORT INFORMATION
  Report Type: Report from Study
  Country: US (occurrence: US)
  Receive Date: 20181220
  Receipt Date: 20190102
  Transmission Date: 20190417
  Serious: Yes (Other)
  Sender: FDA-Public Use
  Company Number: US-ACTELION-A-US2017-164172

PATIENT
  Age: 66 Year
  Sex: Female

DRUGS (31)
  1. MOMETASONE [Concomitant]
     Active Substance: MOMETASONE
  2. MONTELUKAST [Concomitant]
     Active Substance: MONTELUKAST SODIUM
  3. POTASSIUM CHLORIDE. [Concomitant]
     Active Substance: POTASSIUM CHLORIDE
  4. TRACLEER [Suspect]
     Active Substance: BOSENTAN
     Indication: PULMONARY ARTERIAL HYPERTENSION
     Dosage: 125 MG, BID
     Route: 048
     Dates: start: 20160127
  5. BENTYL [Concomitant]
     Active Substance: DICYCLOMINE HYDROCHLORIDE
  6. IRBESARTAN. [Concomitant]
     Active Substance: IRBESARTAN
  7. LEVALBUTEROL. [Concomitant]
     Active Substance: LEVALBUTEROL
  8. MELOXICAM. [Concomitant]
     Active Substance: MELOXICAM
  9. METRONIDAZOL [Concomitant]
     Active Substance: METRONIDAZOLE
  10. TRACLEER [Suspect]
     Active Substance: BOSENTAN
     Dosage: 62.5 MG, BID
     Route: 048
     Dates: start: 20150904
  11. ARMOUR THYROID [Concomitant]
     Active Substance: THYROID, PORCINE
  12. HYDROCORTISONE. [Concomitant]
     Active Substance: HYDROCORTISONE
  13. MILK THISTLE PLUS [Concomitant]
     Active Substance: DIETARY SUPPLEMENT\HERBALS\MILK THISTLE
  14. AMLODIPINE [Concomitant]
     Active Substance: AMLODIPINE BESYLATE
  15. BUPROPION HCL [Concomitant]
     Active Substance: BUPROPION HYDROCHLORIDE
  16. DICYCLOMINE [Concomitant]
     Active Substance: DICYCLOMINE HYDROCHLORIDE
  17. MUPIROCIN. [Concomitant]
     Active Substance: MUPIROCIN
  18. PANTOPRAZOLE [Concomitant]
     Active Substance: PANTOPRAZOLE
  19. TESTOSTERONE. [Concomitant]
     Active Substance: TESTOSTERONE
  20. ALBUTEROL. [Concomitant]
     Active Substance: ALBUTEROL
  21. GABAPENTIN AAA [Concomitant]
  22. MELATONIN [Concomitant]
     Active Substance: MELATONIN
  23. ADVAIR HFA [Concomitant]
     Active Substance: FLUTICASONE PROPIONATE\SALMETEROL XINAFOATE
  24. VITAMIN B12 [Concomitant]
     Active Substance: CYANOCOBALAMIN
  25. BIOTIN [Concomitant]
     Active Substance: BIOTIN
  26. CLEOCIN [Concomitant]
     Active Substance: CLINDAMYCIN PHOSPHATE
  27. PROAIR HFA [Concomitant]
     Active Substance: ALBUTEROL SULFATE
  28. PROGESTERONE. [Concomitant]
     Active Substance: PROGESTERONE
  29. CURCUMIN [Concomitant]
     Active Substance: CURCUMIN
  30. HYDROCHLOROTHIAZID [Concomitant]
     Active Substance: HYDROCHLOROTHIAZIDE
  31. TRAMADOL. [Concomitant]
     Active Substance: TRAMADOL

REACTIONS (2)
  - Spinal operation [Unknown]
  - Urinary tract infection [Recovered/Resolved]

NARRATIVE: CASE EVENT DATE: 20171125
